FAERS Safety Report 17726954 (Version 1)
Quarter: 2020Q2

REPORT INFORMATION
  Report Type: Spontaneous
  Country: US (occurrence: US)
  Receive Date: 20200430
  Receipt Date: 20200430
  Transmission Date: 20200714
  Serious: Yes (Hospitalization, Other)
  Sender: FDA-Public Use
  Company Number: US-TEVA-2020-US-1227393

PATIENT
  Age: 0 Day
  Sex: Female

DRUGS (1)
  1. NORTREL [Suspect]
     Active Substance: ETHINYL ESTRADIOL\NORETHINDRONE
     Indication: CONTRACEPTION
     Dosage: NORTREL,0.5 MG / 0.035 MG
     Route: 065
     Dates: start: 201910

REACTIONS (4)
  - Metrorrhagia [Unknown]
  - Psychotic disorder [Unknown]
  - Product quality issue [Unknown]
  - Hallucination [Unknown]

NARRATIVE: CASE EVENT DATE: 20200331
